FAERS Safety Report 17705390 (Version 1)
Quarter: 2020Q2

REPORT INFORMATION
  Report Type: Spontaneous
  Country: US (occurrence: US)
  Receive Date: 20200424
  Receipt Date: 20200424
  Transmission Date: 20200714
  Serious: No
  Sender: FDA-Public Use
  Company Number: None

PATIENT
  Age: 62 Year
  Sex: Male
  Weight: 75.15 kg

DRUGS (7)
  1. LISINOPRIL. [Concomitant]
     Active Substance: LISINOPRIL
  2. BABY ASPIRIN [Concomitant]
     Active Substance: ASPIRIN
  3. TURMERIC [Concomitant]
     Active Substance: HERBALS\TURMERIC
  4. ISOVUE 300 [Suspect]
     Active Substance: IOPAMIDOL
     Indication: SCAN WITH CONTRAST
     Dates: start: 20200421, end: 20200421
  5. ATORVASTATIN [Concomitant]
     Active Substance: ATORVASTATIN
  6. METOPROLOL. [Concomitant]
     Active Substance: METOPROLOL
  7. COQ 10 [Concomitant]
     Active Substance: UBIDECARENONE

REACTIONS (3)
  - Thyroid function test abnormal [None]
  - Feeling cold [None]
  - Chills [None]

NARRATIVE: CASE EVENT DATE: 20200421
